FAERS Safety Report 22078273 (Version 1)
Quarter: 2023Q1

REPORT INFORMATION
  Report Type: Report from Study
  Country: US (occurrence: US)
  Receive Date: 20230309
  Receipt Date: 20230309
  Transmission Date: 20230418
  Serious: Yes (Hospitalization)
  Sender: FDA-Public Use
  Company Number: US-ABBVIE-4325323

PATIENT
  Age: 67 Year
  Sex: Male
  Weight: 75.296 kg

DRUGS (1)
  1. HUMIRA [Suspect]
     Active Substance: ADALIMUMAB
     Indication: Rheumatoid arthritis
     Dosage: 40MG
     Route: 058
     Dates: start: 20210201

REACTIONS (5)
  - COVID-19 [Unknown]
  - COVID-19 pneumonia [Unknown]
  - Pneumonia [Recovering/Resolving]
  - Oxygen saturation decreased [Recovering/Resolving]
  - Pneumonia [Recovering/Resolving]

NARRATIVE: CASE EVENT DATE: 20210301
